FAERS Safety Report 5431176-5 (Version None)
Quarter: 2007Q3

REPORT INFORMATION
  Report Type: 
  Country: None (occurrence: None)
  Receive Date: 20070830
  Receipt Date: 20070316
  Transmission Date: 20080115
  Serious: No
  Sender: FDA-Public Use
  Company Number: A0643546A

PATIENT
  Age: 44 Year
  Sex: Female

DRUGS (7)
  1. WELLBUTRIN XL [Suspect]
     Indication: ANXIETY
     Dosage: 150MG PER DAY
     Route: 048
  2. RISPERDAL [Concomitant]
  3. LORAZEPAM [Concomitant]
  4. ZYRTEC [Concomitant]
  5. TYLENOL (CAPLET) [Concomitant]
  6. ACIPHEX [Concomitant]
  7. ATARAX [Concomitant]

REACTIONS (1)
  - HEADACHE [None]
